FAERS Safety Report 25633307 (Version 1)
Quarter: 2025Q3

REPORT INFORMATION
  Report Type: Spontaneous
  Country: US (occurrence: None)
  Receive Date: 20250731
  Receipt Date: 20250731
  Transmission Date: 20251020
  Serious: Yes (Hospitalization)
  Sender: FDA-CTU
  Company Number: None

PATIENT
  Sex: Female

DRUGS (1)
  1. SCEMBLIX [Suspect]
     Active Substance: ASCIMINIB HYDROCHLORIDE
     Indication: Chronic myeloid leukaemia
     Dosage: 80 MG DAILY ORAL ?
     Route: 048
     Dates: start: 20250623

REACTIONS (4)
  - Dehydration [None]
  - Orthostatic hypotension [None]
  - Acute kidney injury [None]
  - Abdominal pain upper [None]
